FAERS Safety Report 17431054 (Version 1)
Quarter: 2020Q1

REPORT INFORMATION
  Report Type: Spontaneous
  Country: US (occurrence: US)
  Receive Date: 20200217
  Receipt Date: 20200217
  Transmission Date: 20200409
  Serious: Yes (Other)
  Sender: FDA-Public Use
  Company Number: None

PATIENT
  Age: 45 Year
  Sex: Female
  Weight: 56.25 kg

DRUGS (8)
  1. LOPID 600MG [Concomitant]
     Dates: start: 20191015
  2. XANAX [Concomitant]
     Active Substance: ALPRAZOLAM
     Dates: start: 20191015
  3. VASCEPA 1GM [Concomitant]
     Dates: start: 20191015
  4. CAPECITABINE. [Suspect]
     Active Substance: CAPECITABINE
     Indication: BREAST CANCER
     Route: 048
     Dates: start: 20191017, end: 20191213
  5. ZOFRAN [Concomitant]
     Active Substance: ONDANSETRON HYDROCHLORIDE
     Dates: start: 20191015
  6. TRULANCE 3MG [Concomitant]
     Dates: start: 20191015
  7. FIORICET [Concomitant]
     Active Substance: ACETAMINOPHEN\BUTALBITAL\CAFFEINE
     Dates: start: 20191015
  8. AKYNZEO 300-0.5MG [Concomitant]

REACTIONS (2)
  - Skin erosion [None]
  - Skin discolouration [None]

NARRATIVE: CASE EVENT DATE: 20191213
